FAERS Safety Report 19656644 (Version 2)
Quarter: 2021Q3

REPORT INFORMATION
  Report Type: Other
  Country: US (occurrence: US)
  Receive Date: 20210804
  Receipt Date: 20210817
  Transmission Date: 20211014
  Serious: Yes (Death)
  Sender: FDA-Public Use
  Company Number: US-ROCHE-2883409

PATIENT
  Age: 79 Year
  Sex: Male

DRUGS (15)
  1. OXYGEN. [Concomitant]
     Active Substance: OXYGEN
  2. VENTOLIN HFA [Concomitant]
     Active Substance: ALBUTEROL SULFATE
  3. ADVAIR DISKUS [Concomitant]
     Active Substance: FLUTICASONE PROPIONATE\SALMETEROL XINAFOATE
  4. CYMBALTA [Concomitant]
     Active Substance: DULOXETINE HYDROCHLORIDE
  5. VASOTEC [Concomitant]
     Active Substance: ENALAPRIL MALEATE
  6. GABAPENTINE [Concomitant]
     Active Substance: GABAPENTIN
  7. ACETAMINOPHEN. [Concomitant]
     Active Substance: ACETAMINOPHEN
  8. ASA [Concomitant]
     Active Substance: ASPIRIN
  9. ESBRIET [Suspect]
     Active Substance: PIRFENIDONE
     Indication: CYSTIC FIBROSIS
     Dosage: TAKE 1 TABLET BY MOUTH 3 TIMES A DAY
     Route: 048
  10. VITAMIN C [Concomitant]
     Active Substance: ASCORBIC ACID
  11. FLONASE [Concomitant]
     Active Substance: FLUTICASONE PROPIONATE
  12. AMOXICILLIN. [Concomitant]
     Active Substance: AMOXICILLIN
  13. FARXIGA [Concomitant]
     Active Substance: DAPAGLIFLOZIN PROPANEDIOL
  14. OFLOXACIN. [Concomitant]
     Active Substance: OFLOXACIN
  15. BUMETANIDE. [Concomitant]
     Active Substance: BUMETANIDE

REACTIONS (2)
  - Off label use [Unknown]
  - Death [Fatal]

NARRATIVE: CASE EVENT DATE: 20210714
